FAERS Safety Report 8248924-1 (Version None)
Quarter: 2012Q2

REPORT INFORMATION
  Report Type: 
  Country: None (occurrence: None)
  Receive Date: 20120402
  Receipt Date: 20120319
  Transmission Date: 20120825
  Serious: Yes (Other)
  Sender: FDA-Public Use
  Company Number: US-BRISTOL-MYERS SQUIBB COMPANY-16464133

PATIENT
  Age: 26 Year
  Sex: Male

DRUGS (3)
  1. VINCRISTINE [Suspect]
     Indication: PRIMITIVE NEUROECTODERMAL TUMOUR
     Dosage: DAY 1 AND 8
  2. CYCLOPHOSPHAMIDE [Suspect]
     Indication: PRIMITIVE NEUROECTODERMAL TUMOUR
  3. CISPLATIN [Suspect]
     Indication: PRIMITIVE NEUROECTODERMAL TUMOUR
     Dosage: DAY 1

REACTIONS (4)
  - OPTIC NEUROPATHY [None]
  - RETINOPATHY [None]
  - NEPHROPATHY [None]
  - NEUROPATHY PERIPHERAL [None]
